FAERS Safety Report 7435438-1 (Version None)
Quarter: 2011Q2

REPORT INFORMATION
  Report Type: 
  Country: None (occurrence: None)
  Receive Date: 20110425
  Receipt Date: 20110412
  Transmission Date: 20111010
  Serious: Yes (Hospitalization)
  Sender: FDA-Public Use
  Company Number: US-MERCK-1103USA02684

PATIENT
  Age: 69 Year
  Sex: Female

DRUGS (8)
  1. VITAMIN D (UNSPECIFIED) [Concomitant]
     Route: 065
     Dates: start: 20020101, end: 20090101
  2. ACTONEL [Suspect]
     Indication: OSTEOPENIA
     Route: 065
     Dates: start: 20090101
  3. FOSAMAX [Suspect]
     Indication: OSTEOPENIA
     Route: 048
     Dates: start: 20021101
  4. FOSAMAX [Suspect]
     Indication: OSTEOPOROSIS
     Route: 048
     Dates: start: 20021101
  5. OS-CAL [Concomitant]
     Route: 065
     Dates: start: 20020101, end: 20090101
  6. ALENDRONATE SODIUM [Suspect]
     Indication: OSTEOPENIA
     Route: 048
     Dates: start: 20081101, end: 20090216
  7. FOSAMAX [Suspect]
     Route: 048
     Dates: start: 20080201
  8. FOSAMAX [Suspect]
     Route: 048
     Dates: start: 20080201

REACTIONS (4)
  - FEMUR FRACTURE [None]
  - FALL [None]
  - DIABETES MELLITUS [None]
  - LOW TURNOVER OSTEOPATHY [None]
